FAERS Safety Report 24906136 (Version 2)
Quarter: 2025Q1

REPORT INFORMATION
  Report Type: Spontaneous
  Country: US (occurrence: US)
  Receive Date: 20250130
  Receipt Date: 20250320
  Transmission Date: 20250409
  Serious: Yes (Other)
  Sender: NOVARTIS
  Company Number: US-002147023-NVSC2025US016739

PATIENT
  Sex: Male
  Weight: 76.8 kg

DRUGS (1)
  1. PLUVICTO [Suspect]
     Active Substance: LUTETIUM LU-177 VIPIVOTIDE TETRAXETAN
     Indication: Prostate cancer
     Route: 042
     Dates: start: 20240917, end: 20241212

REACTIONS (3)
  - Thrombocytopenia [Unknown]
  - General physical health deterioration [Unknown]
  - Prostatic specific antigen [Unknown]
